FAERS Safety Report 8956997 (Version 3)
Quarter: 2013Q2

REPORT INFORMATION
  Report Type: Spontaneous
  Country: US (occurrence: US)
  Receive Date: 20121211
  Receipt Date: 20130612
  Transmission Date: 20140414
  Serious: Yes (Hospitalization)
  Sender: FDA-Public Use
  Company Number: US-BAYER-2012-128715

PATIENT
  Age: 42 Year
  Sex: Female

DRUGS (5)
  1. YASMIN [Suspect]
  2. NORVASC [Concomitant]
     Dosage: 5 MG, UNK
  3. VICODIN [Concomitant]
     Indication: PAIN
  4. LOPRESSOR [Concomitant]
     Indication: HYPERTENSION
  5. PREDNISONE [Concomitant]
     Dosage: 10 MG, UNK
     Dates: start: 20051005

REACTIONS (1)
  - Aortic thrombosis [None]
